FAERS Safety Report 16666230 (Version 2)
Quarter: 2019Q3

REPORT INFORMATION
  Report Type: Spontaneous
  Country: US (occurrence: US)
  Receive Date: 20190805
  Receipt Date: 20190806
  Transmission Date: 20191004
  Serious: Yes (Other)
  Sender: FDA-Public Use
  Company Number: US-ACCORD-092664

PATIENT
  Age: 71 Year
  Sex: Female
  Weight: 61.69 kg

DRUGS (3)
  1. DOCETAXEL ACCORD [Suspect]
     Active Substance: DOCETAXEL
     Indication: BREAST CANCER
     Dosage: NUMBER OF CYCLES: 06
     Dates: start: 20150422, end: 20150805
  2. METOPROLOL. [Concomitant]
     Active Substance: METOPROLOL
     Dates: start: 2009
  3. IRBESARTAN. [Concomitant]
     Active Substance: IRBESARTAN
     Dates: start: 2012

REACTIONS (1)
  - Alopecia [Not Recovered/Not Resolved]

NARRATIVE: CASE EVENT DATE: 201602
